FAERS Safety Report 4525644-8 (Version None)
Quarter: 2004Q4

REPORT INFORMATION
  Report Type: 
  Country: None (occurrence: None)
  Receive Date: 20041116
  Receipt Date: 20040930
  Transmission Date: 20050328
  Serious: No
  Sender: FDA-Public Use
  Company Number: S04-USA-06687-01

PATIENT
  Age: 79 Year
  Sex: Male

DRUGS (4)
  1. NAMENDA [Suspect]
     Indication: DEMENTIA
     Dosage: 5 MG QD PO
     Route: 048
     Dates: start: 20040821, end: 20040827
  2. NAMENDA [Suspect]
     Indication: DEMENTIA
     Dosage: 5 MG QAM PO
     Route: 048
     Dates: start: 20040904, end: 20040910
  3. NAMENDA [Suspect]
     Indication: DEMENTIA
     Dosage: 10 MG QHS PO
     Route: 048
     Dates: start: 20040904, end: 20040910
  4. NAMENDA [Suspect]
     Indication: DEMENTIA
     Dosage: 10 MG BID PO
     Route: 048
     Dates: start: 20040911, end: 20040927

REACTIONS (2)
  - ASTHENIA [None]
  - DIZZINESS [None]
